FAERS Safety Report 24814627 (Version 1)
Quarter: 2025Q1

REPORT INFORMATION
  Report Type: Spontaneous
  Country: US (occurrence: None)
  Receive Date: 20250107
  Receipt Date: 20250107
  Transmission Date: 20250409
  Serious: Yes (Hospitalization)
  Sender: FDA-CTU
  Company Number: None

PATIENT
  Sex: Female
  Weight: 79.3 kg

DRUGS (1)
  1. PEMBROLIZUMAB [Suspect]
     Active Substance: PEMBROLIZUMAB

REACTIONS (6)
  - Jugular vein thrombosis [None]
  - Colitis [None]
  - Cryptitis [None]
  - Abscess intestinal [None]
  - Proctitis [None]
  - Immune-mediated enterocolitis [None]

NARRATIVE: CASE EVENT DATE: 20241228
